FAERS Safety Report 8916194 (Version 2)
Quarter: 2013Q1

REPORT INFORMATION
  Report Type: Spontaneous
  Country: JP (occurrence: JP)
  Receive Date: 20121120
  Receipt Date: 20130107
  Transmission Date: 20140127
  Serious: Yes (Hospitalization)
  Sender: FDA-Public Use
  Company Number: JP-GLAXOSMITHKLINE-B0834165A

PATIENT
  Age: 72 Year
  Sex: Male
  Weight: 59 kg

DRUGS (10)
  1. VALTREX [Suspect]
     Indication: HERPES ZOSTER
     Dosage: 500MG THREE TIMES PER DAY
     Route: 048
     Dates: start: 20120922, end: 20120923
  2. ACYCRIL [Concomitant]
     Indication: HERPES ZOSTER
     Dosage: 500MG PER DAY
     Route: 042
     Dates: start: 20120920, end: 20120921
  3. PERSANTIN [Concomitant]
     Dosage: 100MG THREE TIMES PER DAY
     Route: 048
  4. ZYLORIC [Concomitant]
     Dosage: 100MG PER DAY
     Route: 048
  5. ARTIST [Concomitant]
     Dosage: 10MG PER DAY
     Route: 048
  6. CALBLOCK [Concomitant]
     Dosage: 16MG PER DAY
     Route: 048
  7. FUROSEMIDE [Concomitant]
     Dosage: 20MG TWICE PER DAY
     Route: 048
  8. EPADEL [Concomitant]
     Dosage: 900MG TWICE PER DAY
     Route: 048
  9. FLIVAS [Concomitant]
     Dosage: 75MG PER DAY
     Route: 048
  10. UBRETID [Concomitant]
     Dosage: 2.5MG PER DAY
     Route: 048

REACTIONS (8)
  - Dysarthria [Recovered/Resolved]
  - Amnesia [Recovered/Resolved]
  - Dysstasia [Recovered/Resolved]
  - Gait disturbance [Unknown]
  - Mental disorder [Unknown]
  - Drug level increased [Unknown]
  - Blood urea increased [Unknown]
  - Blood creatinine increased [Unknown]
